FAERS Safety Report 21418563 (Version 3)
Quarter: 2022Q4

REPORT INFORMATION
  Report Type: Spontaneous
  Country: IT (occurrence: None)
  Receive Date: 20221006
  Receipt Date: 20221027
  Transmission Date: 20230113
  Serious: Yes (Death, Hospitalization, Other)
  Sender: FDA-Public Use
  Company Number: 2022A334445

PATIENT
  Age: 38 Year
  Sex: Male

DRUGS (1)
  1. EVUSHELD [Suspect]
     Active Substance: CILGAVIMAB\TIXAGEVIMAB
     Route: 030

REACTIONS (2)
  - Pancreatitis acute [Fatal]
  - Haemolytic uraemic syndrome [Unknown]

NARRATIVE: CASE EVENT DATE: 20220911
